FAERS Safety Report 9883196 (Version 2)
Quarter: 2014Q1

REPORT INFORMATION
  Report Type: Spontaneous
  Country: US (occurrence: US)
  Receive Date: 20140208
  Receipt Date: 20140218
  Transmission Date: 20141002
  Serious: No
  Sender: FDA-Public Use
  Company Number: US-009507513-1402USA003062

PATIENT
  Age: 68 Year
  Sex: Male

DRUGS (1)
  1. NASONEX [Suspect]
     Indication: NASAL CONGESTION
     Dosage: UNK
     Route: 045
     Dates: start: 20140122, end: 20140124

REACTIONS (3)
  - Nasal congestion [Recovered/Resolved]
  - Nasal congestion [Unknown]
  - Dyspnoea [Recovered/Resolved]
